FAERS Safety Report 20742892 (Version 1)
Quarter: 2022Q2

REPORT INFORMATION
  Report Type: Spontaneous
  Country: JP (occurrence: JP)
  Receive Date: 20220424
  Receipt Date: 20220424
  Transmission Date: 20220720
  Serious: Yes (Death, Other)
  Sender: FDA-Public Use
  Company Number: None

PATIENT
  Age: 65 Year
  Sex: Male

DRUGS (18)
  1. PREDNISOLONE [Suspect]
     Active Substance: PREDNISOLONE
     Indication: Angioimmunoblastic T-cell lymphoma stage IV
     Dosage: 750 MILLIGRAM/SQ. METER, 30 MG/M2 OF PREDNISOLONE FROM DAY 1 TO DAY 5 AT MONTHLY INTERVALS, TOTAL OF
     Route: 065
  2. CYCLOSPORINE [Suspect]
     Active Substance: CYCLOSPORINE
     Indication: Aplastic anaemia
     Dosage: 6 MILLIGRAM/KILOGRAM PER DAY
     Route: 065
  3. CYCLOSPORINE [Suspect]
     Active Substance: CYCLOSPORINE
     Indication: Aplastic anaemia
     Dosage: UNK, (CYCLOSPORIUNE ADMISNISTERED FOR TOTAL OF 9 MONTHS)
     Route: 065
  4. CYCLOSPORINE [Suspect]
     Active Substance: CYCLOSPORINE
     Dosage: 6 MILLIGRAM/KILOGRAM PER DAY FOR RELAPSE OF APLASTIC ANEMIA
     Route: 065
  5. ETOPOSIDE [Suspect]
     Active Substance: ETOPOSIDE
     Indication: Acute myeloid leukaemia
     Dosage: 40 MILLIGRAM/SQ. METER PER DAY
     Route: 065
  6. ETOPOSIDE [Suspect]
     Active Substance: ETOPOSIDE
     Dosage: UNK, DOSE REDUCED TO 50%
     Route: 065
  7. CYCLOPHOSPHAMIDE [Suspect]
     Active Substance: CYCLOPHOSPHAMIDE
     Indication: Angioimmunoblastic T-cell lymphoma stage IV
     Dosage: 2500 MILLIGRAM/SQ. METER,(TOTAL 2500(500*5 )EVERY 5 CYCLES), THP-COP
     Route: 065
  8. CYCLOPHOSPHAMIDE [Suspect]
     Active Substance: CYCLOPHOSPHAMIDE
     Dosage: UNK,DOSE WAS REDUCED TO 75%
     Route: 065
  9. PIRARUBICIN [Suspect]
     Active Substance: PIRARUBICIN
     Indication: Angioimmunoblastic T-cell lymphoma stage IV
     Dosage: 150 MILLIGRAM/SQ. METER (30 MG/M2 (TOTAL 150, MG/M2 FOR EVERY 5 CYCLES)), THP-COP
     Route: 065
  10. VINCRISTINE [Suspect]
     Active Substance: VINCRISTINE
     Indication: Angioimmunoblastic T-cell lymphoma stage IV
     Dosage: 5 MILLIGRAM/SQ. METER, 1 MG/M2 OF VINCRISTINE ON DAY 1(TOTAL 5 MG/M2 EVERY 5 CYCLES
     Route: 065
  11. ANTI-THYMOCYTE GLOBULIN (RABBIT) NOS [Suspect]
     Active Substance: LAPINE T-LYMPHOCYTE IMMUNE GLOBULIN
     Indication: Aplastic anaemia
     Dosage: 2.5 MILLIGRAM/KILOGRAM
     Route: 065
  12. ELTROMBOPAG [Suspect]
     Active Substance: ELTROMBOPAG
     Indication: Aplastic anaemia
     Dosage: 100 MILLIGRAM/KILOGRAM PER DAY
     Route: 065
  13. METHENOLONE [Suspect]
     Active Substance: METHENOLONE
     Indication: Aplastic anaemia
     Dosage: 20 MILLIGRAM PER DAY
     Route: 065
  14. MITOXANTRONE [Suspect]
     Active Substance: MITOXANTRONE HYDROCHLORIDE
     Indication: Acute myeloid leukaemia
     Dosage: 6 MILLIGRAM/SQ. METER PER DAY
     Route: 065
  15. CYTARABINE [Suspect]
     Active Substance: CYTARABINE
     Indication: Acute myeloid leukaemia
     Dosage: 1 MILLIGRAM/SQ. METER PER DAY
     Route: 065
  16. DAUNORUBICIN [Suspect]
     Active Substance: DAUNORUBICIN
     Indication: Acute myeloid leukaemia
     Dosage: 40 MILLIGRAM/SQ. METER PER DAY
     Route: 065
  17. ENOCITABINE [Suspect]
     Active Substance: ENOCITABINE
     Indication: Acute myeloid leukaemia
     Dosage: 200 MILLIGRAM/SQ. METER PER DAY
     Route: 065
  18. AZACITIDINE [Suspect]
     Active Substance: AZACITIDINE
     Indication: Myelodysplastic syndrome
     Dosage: 75 MILLIGRAM/SQ. METER, PER DAY, ADMINISTERED FOR 7 OR 5 DAYS PER ONE CYCLE
     Route: 065

REACTIONS (5)
  - Respiratory failure [Fatal]
  - Pneumonia [Fatal]
  - Myelosuppression [Recovered/Resolved]
  - Therapy partial responder [Unknown]
  - Off label use [Unknown]
